FAERS Safety Report 22037282 (Version 2)
Quarter: 2023Q2

REPORT INFORMATION
  Report Type: Report from Study
  Country: ES (occurrence: ES)
  Receive Date: 20230226
  Receipt Date: 20230404
  Transmission Date: 20230721
  Serious: Yes (Death, Life-Threatening, Other)
  Sender: FDA-Public Use
  Company Number: ES-ABBVIE-21K-144-4096725-00

PATIENT
  Age: 82 Year
  Sex: Female

DRUGS (6)
  1. HUMIRA [Suspect]
     Active Substance: ADALIMUMAB
     Indication: Colitis ulcerative
     Dosage: SECOND INDUCTION DOSE
     Route: 058
     Dates: start: 20130719, end: 20130719
  2. HUMIRA [Suspect]
     Active Substance: ADALIMUMAB
     Route: 058
     Dates: start: 20130802, end: 20210927
  3. HUMIRA [Suspect]
     Active Substance: ADALIMUMAB
     Dosage: FIRST INDUCTION DOSE
     Route: 058
     Dates: start: 20130705, end: 20210705
  4. PANTOPRAZOLE [Concomitant]
     Active Substance: PANTOPRAZOLE
     Indication: Colitis ulcerative
     Route: 048
     Dates: start: 20160121
  5. VEDOLIZUMAB [Concomitant]
     Active Substance: VEDOLIZUMAB
     Indication: Colitis ulcerative
     Dosage: ONCE
     Route: 042
     Dates: start: 20220121, end: 20220121
  6. VEDOLIZUMAB [Concomitant]
     Active Substance: VEDOLIZUMAB
     Indication: Colitis ulcerative
     Dosage: ONCE
     Route: 042
     Dates: start: 20220204, end: 20220204

REACTIONS (3)
  - Breast cancer recurrent [Fatal]
  - Invasive breast carcinoma [Recovered/Resolved]
  - Lung adenocarcinoma [Fatal]

NARRATIVE: CASE EVENT DATE: 20210909
